FAERS Safety Report 12161854 (Version 1)
Quarter: 2016Q1

REPORT INFORMATION
  Report Type: Report from Study
  Country: JP (occurrence: JP)
  Receive Date: 20160309
  Receipt Date: 20160309
  Transmission Date: 20160526
  Serious: Yes (Hospitalization)
  Sender: FDA-Public Use
  Company Number: JP-ROCHE-1167229

PATIENT
  Age: 68 Year
  Sex: Male
  Weight: 57.4 kg

DRUGS (26)
  1. VINCRISTINE [Suspect]
     Active Substance: VINCRISTINE
     Indication: DIFFUSE LARGE B-CELL LYMPHOMA
     Dosage: DATE OF MOST RECENT DOSE : 01/DEC/2012, LAST DOSE : 2 MG
     Route: 040
     Dates: start: 20121019
  2. ASCORBIC ACID/CALCIUM PANTOTHENATE [Concomitant]
     Indication: PIGMENTATION DISORDER
     Route: 065
     Dates: start: 20121119
  3. RABEPRAZOLE [Concomitant]
     Active Substance: RABEPRAZOLE
     Route: 065
     Dates: start: 20121222
  4. BAKTAR [Concomitant]
     Active Substance: SULFAMETHOXAZOLE\TRIMETHOPRIM
     Indication: PNEUMOCYSTIS JIROVECII PNEUMONIA
     Route: 065
     Dates: start: 20121110, end: 20121209
  5. SENNOSIDE [Concomitant]
     Active Substance: SENNOSIDES
     Indication: CONSTIPATION
     Route: 065
     Dates: start: 20121119, end: 20121209
  6. AMMONIUM GLYCYRRHIZATE/CYSTEINE HYDROCHLORIDE/GLYCINE [Concomitant]
     Route: 065
     Dates: start: 20121211, end: 20121215
  7. LOXOPROFEN SODIUM HYDRATE [Concomitant]
     Active Substance: LOXOPROFEN SODIUM DIHYDRATE
     Indication: PREMEDICATION
     Route: 065
     Dates: start: 20130128, end: 20130128
  8. ACETAMINOPHEN. [Concomitant]
     Active Substance: ACETAMINOPHEN
     Indication: PREMEDICATION
     Route: 065
     Dates: start: 20121130, end: 20121130
  9. FESIN (JAPAN) [Concomitant]
     Active Substance: IRON SUCROSE
     Indication: IRON DEFICIENCY ANAEMIA
     Route: 065
     Dates: start: 20121228, end: 20130104
  10. DIPHENHYDRAMINE HYDROCHLORIDE. [Concomitant]
     Active Substance: DIPHENHYDRAMINE HYDROCHLORIDE
     Indication: PREMEDICATION
     Route: 065
     Dates: start: 20130128, end: 20130128
  11. SENNOSIDE [Concomitant]
     Active Substance: SENNOSIDES
     Route: 065
     Dates: start: 20121208
  12. GRANISETRON [Concomitant]
     Active Substance: GRANISETRON
     Route: 065
     Dates: start: 20121019, end: 20121201
  13. RABEPRAZOLE [Concomitant]
     Active Substance: RABEPRAZOLE
     Indication: GASTRITIS
     Route: 065
     Dates: start: 20121017, end: 20121209
  14. GRANISETRON [Concomitant]
     Active Substance: GRANISETRON
     Indication: PREMEDICATION
     Route: 065
     Dates: start: 20121109, end: 20121109
  15. OBINUTUZUMAB [Suspect]
     Active Substance: OBINUTUZUMAB
     Indication: DIFFUSE LARGE B-CELL LYMPHOMA
     Dosage: VOLUME OF LAST DOSE : 250 ML, LAST DOSE CONCENTRATION : 4 MG/ML, DATE OF MOST RECENT DOSE : 30/NOV/2
     Route: 042
     Dates: start: 20121018
  16. CYCLOPHOSPHAMIDE. [Suspect]
     Active Substance: CYCLOPHOSPHAMIDE
     Indication: DIFFUSE LARGE B-CELL LYMPHOMA
     Dosage: DATE OF MOST RECENT DOSE : 01/DEC/2012, LAST DOSE : 1270 MG
     Route: 042
     Dates: start: 20121019
  17. PREDNISONE. [Suspect]
     Active Substance: PREDNISONE
     Indication: DIFFUSE LARGE B-CELL LYMPHOMA
     Dosage: DATE OF MOST RECENT DOSE : 04/DEC/2012, LAST DOSE : 100 MG
     Route: 065
     Dates: start: 20121018
  18. MIYA-BM [Concomitant]
     Active Substance: CLOSTRIDIUM BUTYRICUM SPORES STRAIN M-55
     Indication: CONSTIPATION
     Route: 065
     Dates: start: 20121221
  19. SODIUM FERROUS CITRATE [Concomitant]
     Active Substance: SODIUM FERROUS CITRATE
     Indication: IRON DEFICIENCY ANAEMIA
     Route: 065
     Dates: start: 20121227, end: 20130102
  20. DOXORUBICIN [Suspect]
     Active Substance: DOXORUBICIN
     Indication: DIFFUSE LARGE B-CELL LYMPHOMA
     Dosage: DATE OF MOST RECENT DOSE : 01/DEC/2012, LAST DOSE : 85 MG
     Route: 042
     Dates: start: 20121019
  21. MAGNESIUM OXIDE. [Concomitant]
     Active Substance: MAGNESIUM OXIDE
     Indication: CONSTIPATION
     Route: 065
     Dates: start: 20121201, end: 20121209
  22. DIPHENHYDRAMINE HYDROCHLORIDE. [Concomitant]
     Active Substance: DIPHENHYDRAMINE HYDROCHLORIDE
     Indication: PREMEDICATION
     Route: 065
     Dates: start: 20121130, end: 20121130
  23. RABEPRAZOLE [Concomitant]
     Active Substance: RABEPRAZOLE
     Route: 065
     Dates: start: 20121218, end: 20121220
  24. SULFAMETHOXAZOLE/TRIMETHOPRIM [Concomitant]
     Active Substance: SULFAMETHOXAZOLE\TRIMETHOPRIM
     Indication: PNEUMOCYSTIS JIROVECII PNEUMONIA
     Route: 065
     Dates: start: 20121110, end: 20121209
  25. GRANISETRON [Concomitant]
     Active Substance: GRANISETRON
     Indication: NAUSEA
     Route: 065
     Dates: start: 20121201, end: 20121201
  26. MISOPROSTOL. [Concomitant]
     Active Substance: MISOPROSTOL
     Indication: PREMEDICATION
     Route: 065
     Dates: start: 20130128, end: 20130128

REACTIONS (1)
  - Ileal perforation [Recovered/Resolved]

NARRATIVE: CASE EVENT DATE: 20121209
